FAERS Safety Report 7892622-0 (Version None)
Quarter: 2011Q4

REPORT INFORMATION
  Report Type: 
  Country: None (occurrence: None)
  Receive Date: 20111102
  Receipt Date: 20111018
  Transmission Date: 20120403
  Serious: Yes (Other)
  Sender: FDA-Public Use
  Company Number: 1000024137

PATIENT
  Age: 25 Year
  Sex: Female

DRUGS (1)
  1. ESCITALOPRAM [Suspect]
     Dates: start: 20100501

REACTIONS (1)
  - NARROW ANTERIOR CHAMBER ANGLE [None]
